FAERS Safety Report 7850892-9 (Version None)
Quarter: 2011Q4

REPORT INFORMATION
  Report Type: 
  Country: None (occurrence: None)
  Receive Date: 20111024
  Receipt Date: 20111017
  Transmission Date: 20120403
  Serious: Yes (Other)
  Sender: FDA-Public Use
  Company Number: ABR_00273_2011

PATIENT
  Age: 69 Year
  Sex: Male
  Weight: 98 kg

DRUGS (9)
  1. LYMECYCLINE [Concomitant]
  2. ERYTHROMYCIN [Suspect]
     Indication: PRODUCT USED FOR UNKNOWN INDICATION
  3. ACETAMINOPHEN [Concomitant]
  4. IODOFLEX [Concomitant]
  5. GABAPENTIN [Concomitant]
  6. ALLEVYN [Concomitant]
  7. NOVOLOG MIX 70/30 [Concomitant]
  8. RAMIPRIL [Concomitant]
  9. TRAMADOL HYDROCHLORIDE [Concomitant]

REACTIONS (2)
  - SKIN LESION [None]
  - SKIN ULCER [None]
